FAERS Safety Report 5393484-6 (Version None)
Quarter: 2007Q3

REPORT INFORMATION
  Report Type: 
  Country: None (occurrence: None)
  Receive Date: 20070723
  Receipt Date: 20060620
  Transmission Date: 20080115
  Serious: No
  Sender: FDA-Public Use
  Company Number: A0609703A

PATIENT
  Age: 68 Year
  Sex: Female

DRUGS (10)
  1. AVANDIA [Suspect]
     Dosage: 4MG PER DAY
     Route: 048
     Dates: start: 20000101
  2. FUROSEMIDE [Concomitant]
  3. MIACALCIN [Concomitant]
  4. WARFARIN SODIUM [Concomitant]
  5. CALCITRIOL [Concomitant]
  6. METOPROLOL TARTRATE [Concomitant]
  7. COZAAR [Concomitant]
  8. ZOCOR [Concomitant]
  9. ZETIA [Concomitant]
  10. ZOLOFT [Concomitant]

REACTIONS (3)
  - FAT TISSUE INCREASED [None]
  - MUSCULOSKELETAL DISCOMFORT [None]
  - WEIGHT DECREASED [None]
